FAERS Safety Report 8937215 (Version 1)
Quarter: 2012Q4

REPORT INFORMATION
  Report Type: Spontaneous
  Country: US (occurrence: None)
  Receive Date: 20121121
  Receipt Date: 20121121
  Transmission Date: 20130627
  Serious: Yes (Death)
  Sender: FDA-Public Use
  Company Number: UTC-025591

PATIENT
  Age: 70 Year
  Sex: Female
  Weight: 70.9 kg

DRUGS (1)
  1. TYVASO (6 MICROGRAM, AEROSOL FOR INHALATION) (TREPROSTINIL SODIUM) [Suspect]
     Indication: PULMONARY HYPERTENSION SECONDARY
     Dosage: 18-54 micrograms (4 in 1 day), inhalation
     Route: 055
     Dates: start: 20100719

REACTIONS (1)
  - Death [None]
